FAERS Safety Report 20552522 (Version 2)
Quarter: 2022Q1

REPORT INFORMATION
  Report Type: Spontaneous
  Country: JP (occurrence: JP)
  Receive Date: 20220304
  Receipt Date: 20220325
  Transmission Date: 20220423
  Serious: Yes (Hospitalization, Other)
  Sender: FDA-Public Use
  Company Number: JP-GLAXOSMITHKLINE-JP2022JPN037347

PATIENT
  Sex: Male

DRUGS (2)
  1. SERETIDE [Suspect]
     Active Substance: FLUTICASONE PROPIONATE\SALMETEROL XINAFOATE
     Indication: Asthma
     Dosage: 100 ?G/DAY
  2. CLARITHROMYCIN [Concomitant]
     Active Substance: CLARITHROMYCIN
     Indication: Chronic sinusitis
     Dosage: 6 MG/KG/DAY

REACTIONS (12)
  - Diffuse panbronchiolitis [Unknown]
  - Dyspnoea exertional [Unknown]
  - Wheezing [Unknown]
  - Hypoxia [Unknown]
  - Pneumonia bacterial [Unknown]
  - Productive cough [Unknown]
  - Cough [Unknown]
  - Asthma [Unknown]
  - Chronic sinusitis [Unknown]
  - Sinusitis [Unknown]
  - Inflammation [Unknown]
  - Infection susceptibility increased [Unknown]
